FAERS Safety Report 8773226 (Version 1)
Quarter: 2012Q4

REPORT INFORMATION
  Report Type: 
  Country: BR (occurrence: BR)
  Receive Date: 20120907
  Receipt Date: 20120907
  Transmission Date: 20130627
  Serious: Yes (Hospitalization)
  Sender: FDA-Public Use
  Company Number: BR-PERRIGO-12BR007696

PATIENT
  Age: 26 Day
  Sex: Male
  Weight: 3.16 kg

DRUGS (1)
  1. ACETAMINOPHEN 650MG ER 544 [Suspect]
     Indication: PRODUCT USED FOR UNKNOWN INDICATION
     Dosage: 10mg/kg, q4 hours for 3 days
     Route: 048

REACTIONS (12)
  - Acute hepatic failure [Recovered/Resolved]
  - Gastrointestinal haemorrhage [Unknown]
  - Jaundice [Unknown]
  - Shock [Recovered/Resolved]
  - Hepatomegaly [Unknown]
  - Vomiting [Unknown]
  - Irritability [Unknown]
  - Feeding disorder neonatal [Unknown]
  - Pyrexia [Unknown]
  - Coagulation disorder neonatal [Recovered/Resolved]
  - Metabolic acidosis [Unknown]
  - Blood glucose decreased [Unknown]
